FAERS Safety Report 4546882-4 (Version None)
Quarter: 2005Q1

REPORT INFORMATION
  Report Type: 
  Country: None (occurrence: None)
  Receive Date: 20050105
  Receipt Date: 20041216
  Transmission Date: 20050727
  Serious: Yes (Other)
  Sender: FDA-Public Use
  Company Number: JP_041205471

PATIENT
  Age: 69 Year
  Sex: Male

DRUGS (1)
  1. ONCOVIN [Suspect]
     Indication: MALIGNANT MELANOMA

REACTIONS (1)
  - ACUTE MYOCARDIAL INFARCTION [None]
